FAERS Safety Report 9683787 (Version 1)
Quarter: 2013Q4

REPORT INFORMATION
  Report Type: Spontaneous
  Country: ES (occurrence: ES)
  Receive Date: 20131112
  Receipt Date: 20131112
  Transmission Date: 20140711
  Serious: Yes (Other)
  Sender: FDA-Public Use
  Company Number: ES-BRISTOL-MYERS SQUIBB COMPANY-19759208

PATIENT
  Age: 50 Year
  Sex: Male

DRUGS (4)
  1. ABILIFY [Suspect]
     Route: 065
  2. DEPAMIDE [Concomitant]
     Route: 065
  3. LORAZEPAM [Concomitant]
     Route: 065
  4. SINOGAN [Concomitant]
     Route: 065

REACTIONS (1)
  - Arteriosclerosis [Unknown]
